FAERS Safety Report 6384058-9 (Version None)
Quarter: 2009Q4

REPORT INFORMATION
  Report Type: 
  Country: None (occurrence: None)
  Receive Date: 20091001
  Receipt Date: 20090924
  Transmission Date: 20100525
  Serious: Yes (Hospitalization, Other)
  Sender: FDA-Public Use
  Company Number: GB-JNJFOC-20090907630

PATIENT
  Age: 69 Year
  Sex: Female

DRUGS (10)
  1. RISPERIDONE [Suspect]
     Indication: DRUG USE FOR UNKNOWN INDICATION
     Route: 048
  2. DOMPERIDONE [Suspect]
     Indication: DRUG USE FOR UNKNOWN INDICATION
     Route: 065
  3. LOPERIMIDE [Suspect]
     Indication: DRUG USE FOR UNKNOWN INDICATION
     Route: 065
  4. DICLOFENAC SODIUM [Suspect]
     Indication: DRUG USE FOR UNKNOWN INDICATION
     Route: 065
  5. FUROSEMIDE [Suspect]
     Indication: DRUG USE FOR UNKNOWN INDICATION
     Route: 065
  6. LOPRAZOLAM [Suspect]
     Indication: DRUG USE FOR UNKNOWN INDICATION
     Route: 065
  7. PROPRANOLOL [Suspect]
     Indication: DRUG USE FOR UNKNOWN INDICATION
     Route: 065
  8. ZOPICLONE [Suspect]
     Indication: DRUG USE FOR UNKNOWN INDICATION
     Route: 065
  9. CITALOPRAM HYDROBROMIDE [Suspect]
     Indication: DRUG USE FOR UNKNOWN INDICATION
     Route: 065
  10. CO CODAMOL [Suspect]
     Indication: DRUG USE FOR UNKNOWN INDICATION
     Route: 065

REACTIONS (10)
  - ABDOMINAL PAIN [None]
  - CHOLELITHIASIS [None]
  - CLOSTRIDIUM DIFFICILE COLITIS [None]
  - DECREASED APPETITE [None]
  - DIARRHOEA [None]
  - DUODENAL ULCER [None]
  - GASTROINTESTINAL DISORDER [None]
  - LARGE INTESTINAL ULCER [None]
  - MALAISE [None]
  - VOMITING [None]
